FAERS Safety Report 7659579-9 (Version None)
Quarter: 2011Q3

REPORT INFORMATION
  Report Type: 
  Country: None (occurrence: None)
  Receive Date: 20110805
  Receipt Date: 20110729
  Transmission Date: 20111222
  Serious: Yes (Hospitalization)
  Sender: FDA-Public Use
  Company Number: JP-CEPHALON-2011004092

PATIENT
  Sex: Male
  Weight: 83 kg

DRUGS (6)
  1. BENDAMUSTINE HCL [Suspect]
     Indication: B-CELL LYMPHOMA
     Route: 042
     Dates: start: 20110125, end: 20110126
  2. LANSOPRAZOLE [Concomitant]
     Dates: end: 20110224
  3. MAGNESIUM OXIDE [Concomitant]
     Dates: end: 20110224
  4. SULFAMETHOXAZOLE AND TRIMETHOPRIM [Concomitant]
     Dates: end: 20110224
  5. GLIMEPIRIDE [Concomitant]
     Dates: end: 20110224
  6. FLUCONAZOLE [Concomitant]
     Dates: end: 20110224

REACTIONS (3)
  - EOSINOPHIL COUNT INCREASED [None]
  - WHITE BLOOD CELL COUNT INCREASED [None]
  - ERYTHEMA MULTIFORME [None]
